FAERS Safety Report 5088038-5 (Version None)
Quarter: 2006Q3

REPORT INFORMATION
  Report Type: 
  Country: None (occurrence: None)
  Receive Date: 20060821
  Receipt Date: 20060814
  Transmission Date: 20061208
  Serious: Yes (Hospitalization)
  Sender: FDA-Public Use
  Company Number: 228693

PATIENT
  Age: 53 Year
  Sex: Male

DRUGS (3)
  1. ERLOTINIB (ERLOTINIB)TABLET [Suspect]
     Indication: NEOPLASM MALIGNANT
     Dosage: 100 MG QD ORAL
     Route: 048
  2. AVASTIN [Suspect]
     Indication: NEOPLASM MALIGNANT
     Dosage: 10 MG/KG, Q2W, INTRAVENOUS
     Route: 042
  3. CISPLATIN [Concomitant]

REACTIONS (8)
  - BLOOD SODIUM DECREASED [None]
  - CONDITION AGGRAVATED [None]
  - HAEMOGLOBIN DECREASED [None]
  - HICCUPS [None]
  - NEUTROPHIL COUNT DECREASED [None]
  - ODYNOPHAGIA [None]
  - PHARYNGOLARYNGEAL PAIN [None]
  - PYREXIA [None]
